FAERS Safety Report 11374650 (Version 1)
Quarter: 2015Q3

REPORT INFORMATION
  Report Type: Spontaneous
  Country: US (occurrence: US)
  Receive Date: 20150811
  Receipt Date: 20150811
  Transmission Date: 20151125
  Serious: Yes (Death, Hospitalization, Other)
  Sender: FDA-Public Use
  Company Number: US-OCTA-LIT10515US

PATIENT
  Age: 3 Month
  Sex: Female

DRUGS (2)
  1. PLASMA [Concomitant]
     Active Substance: HUMAN PLASMA
     Indication: COAGULOPATHY
  2. HUMAN NORMAL IMMUNOGLOBULIN (IV) [Suspect]
     Active Substance: HUMAN IMMUNOGLOBULIN G
     Indication: KAWASAKI^S DISEASE
     Route: 042

REACTIONS (5)
  - Histiocytosis haematophagic [Fatal]
  - Hyperferritinaemia [Fatal]
  - Multi-organ failure [Fatal]
  - Haemolytic anaemia [Fatal]
  - Thrombocytosis [Fatal]
